FAERS Safety Report 5407081-7 (Version None)
Quarter: 2007Q3

REPORT INFORMATION
  Report Type: 
  Country: None (occurrence: None)
  Receive Date: 20070807
  Receipt Date: 20070801
  Transmission Date: 20080115
  Serious: Yes (Hospitalization)
  Sender: FDA-Public Use
  Company Number: FRWYE574903MAY07

PATIENT
  Age: 77 Year
  Sex: Female
  Weight: 56 kg

DRUGS (6)
  1. EFFEXOR XR [Suspect]
     Indication: DEPRESSION
     Dosage: 75 MG DAILY
     Route: 048
     Dates: start: 20070206, end: 20070220
  2. OLMESARTAN MEDOXOMIL [Suspect]
     Indication: HYPERTENSION
     Route: 048
     Dates: end: 20070220
  3. LEXOMIL [Concomitant]
     Dosage: UNKNOWN
     Route: 048
  4. PRAVASTATIN [Concomitant]
     Dosage: UNKNOWN
     Route: 048
  5. HEXAQUINE [Concomitant]
     Dosage: UNKNOWN
  6. EUPRESSYL [Suspect]
     Indication: HYPERTENSION
     Route: 048
     Dates: end: 20070220

REACTIONS (2)
  - FALL [None]
  - ORTHOSTATIC HYPOTENSION [None]
